FAERS Safety Report 9511065 (Version 1)
Quarter: 2013Q3

REPORT INFORMATION
  Report Type: Spontaneous
  Country: US (occurrence: None)
  Receive Date: 20130909
  Receipt Date: 20130909
  Transmission Date: 20140515
  Serious: No
  Sender: FDA-Public Use
  Company Number: None

PATIENT
  Age: 67 Year
  Sex: Female

DRUGS (1)
  1. GLEEVEC [Suspect]
     Route: 048
     Dates: start: 20130724, end: 20130818

REACTIONS (5)
  - Rash [None]
  - Burning sensation [None]
  - Skin exfoliation [None]
  - Pruritus [None]
  - Herpes zoster [None]
